FAERS Safety Report 12085026 (Version 1)
Quarter: 2016Q1

REPORT INFORMATION
  Report Type: Spontaneous
  Country: US (occurrence: US)
  Receive Date: 20160217
  Receipt Date: 20160217
  Transmission Date: 20160526
  Serious: No
  Sender: FDA-Public Use
  Company Number: US-PERRIGO-15US013707

PATIENT
  Age: 17 Year
  Sex: Female
  Weight: 65.31 kg

DRUGS (1)
  1. TRETINOIN. [Suspect]
     Active Substance: TRETINOIN
     Indication: ACNE CYSTIC
     Dosage: ONE APPLICATION, SINGLE
     Route: 061
     Dates: start: 201504, end: 201504

REACTIONS (5)
  - Application site swelling [Recovered/Resolved]
  - Rash macular [Recovered/Resolved]
  - Application site erythema [Recovered/Resolved]
  - Application site scab [Recovered/Resolved]
  - Application site pruritus [Recovered/Resolved]

NARRATIVE: CASE EVENT DATE: 20150408
